FAERS Safety Report 13774273 (Version 2)
Quarter: 2017Q3

REPORT INFORMATION
  Report Type: Spontaneous
  Country: US (occurrence: US)
  Receive Date: 20170721
  Receipt Date: 20170915
  Transmission Date: 20171127
  Serious: Yes (Other)
  Sender: FDA-Public Use
  Company Number: US-ENDO PHARMACEUTICALS INC-2017-004014

PATIENT
  Sex: Male

DRUGS (1)
  1. XIAFLEX [Suspect]
     Active Substance: COLLAGENASE CLOSTRIDIUM HISTOLYTICUM
     Indication: DUPUYTREN^S CONTRACTURE
     Dosage: UNK, UNKNOWN
     Route: 026

REACTIONS (5)
  - Dupuytren^s contracture [Not Recovered/Not Resolved]
  - Surgery [Unknown]
  - Condition aggravated [Not Recovered/Not Resolved]
  - Drug ineffective [Unknown]
  - Injection site pain [Unknown]
